FAERS Safety Report 17218545 (Version 1)
Quarter: 2020Q1

REPORT INFORMATION
  Report Type: Spontaneous
  Country: US (occurrence: US)
  Receive Date: 20191230
  Receipt Date: 20191230
  Transmission Date: 20200409
  Serious: No
  Sender: FDA-Public Use
  Company Number: None

PATIENT
  Sex: Female

DRUGS (1)
  1. TACROLIMUS 0.03% OINTMENT [Suspect]
     Active Substance: TACROLIMUS

REACTIONS (1)
  - Hypersensitivity [None]
